FAERS Safety Report 10184677 (Version 1)
Quarter: 2014Q2

REPORT INFORMATION
  Report Type: Spontaneous
  Country: US (occurrence: US)
  Receive Date: 20140521
  Receipt Date: 20140521
  Transmission Date: 20141212
  Serious: No
  Sender: FDA-Public Use
  Company Number: US-009507513-1405USA008987

PATIENT
  Sex: 0

DRUGS (1)
  1. JANUMET XR [Suspect]
     Dosage: 1 DF, BID
     Route: 048
     Dates: start: 201405

REACTIONS (2)
  - Inappropriate schedule of drug administration [Unknown]
  - No adverse event [Unknown]
